FAERS Safety Report 5847244-X (Version None)
Quarter: 2008Q3

REPORT INFORMATION
  Report Type: 
  Country: None (occurrence: None)
  Receive Date: 20080731
  Receipt Date: 20080523
  Transmission Date: 20090109
  Serious: No
  Sender: FDA-Public Use
  Company Number: US200805005344

PATIENT
  Sex: Female

DRUGS (2)
  1. BYETTA [Suspect]
     Indication: TYPE 2 DIABETES MELLITUS
     Dosage: SUBCUTANEOUS
     Route: 058
  2. METFORMIN HCL [Concomitant]

REACTIONS (3)
  - INJECTION SITE NODULE [None]
  - INJECTION SITE SWELLING [None]
  - PARAESTHESIA ORAL [None]
